FAERS Safety Report 6050133-1 (Version None)
Quarter: 2009Q1

REPORT INFORMATION
  Report Type: 
  Country: None (occurrence: None)
  Receive Date: 20090121
  Receipt Date: 20090105
  Transmission Date: 20090719
  Serious: Yes (Hospitalization)
  Sender: FDA-Public Use
  Company Number: A-NJ2008-23178

PATIENT
  Age: 18 Year
  Sex: Male

DRUGS (3)
  1. TRACLEER [Suspect]
     Indication: PULMONARY ARTERIAL HYPERTENSION
     Dosage: 125 MG, BID, ORAL; 125 MG, QD, ORAL; 125 MG, BID
     Route: 048
     Dates: start: 20071101, end: 20081101
  2. TRACLEER [Suspect]
     Indication: PULMONARY ARTERIAL HYPERTENSION
     Dosage: 125 MG, BID, ORAL; 125 MG, QD, ORAL; 125 MG, BID
     Route: 048
     Dates: start: 20081101, end: 20081101
  3. TRACLEER [Suspect]
     Indication: PULMONARY ARTERIAL HYPERTENSION
     Dosage: 125 MG, BID, ORAL; 125 MG, QD, ORAL; 125 MG, BID
     Route: 048
     Dates: start: 20081101

REACTIONS (3)
  - HAEMOPTYSIS [None]
  - PNEUMONIA [None]
  - RESPIRATORY DISTRESS [None]
